FAERS Safety Report 7026980-6 (Version None)
Quarter: 2010Q4

REPORT INFORMATION
  Report Type: 
  Country: None (occurrence: None)
  Receive Date: 20101004
  Receipt Date: 20100923
  Transmission Date: 20110411
  Serious: Yes (Hospitalization)
  Sender: FDA-Public Use
  Company Number: FR-JNJFOC-20100305110

PATIENT
  Age: 49 Year
  Sex: Female
  Weight: 85 kg

DRUGS (9)
  1. REMICADE [Suspect]
     Indication: RHEUMATOID ARTHRITIS
     Route: 042
  2. REMICADE [Suspect]
     Route: 042
  3. REMICADE [Suspect]
     Route: 042
  4. REMICADE [Suspect]
     Route: 042
  5. REMICADE [Suspect]
     Dosage: 11TH INFUSION
     Route: 042
  6. REMICADE [Suspect]
     Route: 042
  7. METHOTREXATE [Concomitant]
     Indication: RHEUMATOID ARTHRITIS
     Route: 048
  8. SPECIAFOLDINE [Concomitant]
     Indication: RHEUMATOID ARTHRITIS
     Route: 048
  9. DOLIPRANE [Concomitant]
     Indication: ARTHRALGIA
     Route: 048

REACTIONS (6)
  - ERYTHEMA [None]
  - FLUSHING [None]
  - HAEMANGIOMA [None]
  - HOT FLUSH [None]
  - INFUSION RELATED REACTION [None]
  - MYOCLONUS [None]
